FAERS Safety Report 5897760-X (Version None)
Quarter: 2008Q3

REPORT INFORMATION
  Report Type: 
  Country: None (occurrence: None)
  Receive Date: 20080924
  Receipt Date: 20080924
  Transmission Date: 20090109
  Serious: Yes (Hospitalization)
  Sender: FDA-Public Use
  Company Number: None

PATIENT
  Age: 84 Year
  Sex: Female
  Weight: 75 kg

DRUGS (7)
  1. ALTEPLASE 100MG GENENTECH [Suspect]
     Indication: ISCHAEMIC STROKE
     Dosage: 7MG ONCE IV BOLUS
     Route: 040
     Dates: start: 20080919, end: 20080919
  2. ALTEPLASE 100MG GENETECH [Suspect]
     Dosage: 60 MG ONCE IV DRIP
     Route: 041
  3. BENICAR [Concomitant]
  4. NORVASC [Concomitant]
  5. COREG [Concomitant]
  6. WELLCHOL [Concomitant]
  7. CALCIUM SUPPLEMENT [Concomitant]

REACTIONS (3)
  - ENDOTRACHEAL INTUBATION COMPLICATION [None]
  - LIP SWELLING [None]
  - SWOLLEN TONGUE [None]
